FAERS Safety Report 4641258-3 (Version None)
Quarter: 2005Q2

REPORT INFORMATION
  Report Type: 
  Country: None (occurrence: None)
  Receive Date: 20050420
  Receipt Date: 20050420
  Transmission Date: 20051028
  Serious: Yes (Death, Life-Threatening)
  Sender: FDA-Public Use
  Company Number: None

PATIENT
  Sex: Female
  Weight: 53.978 kg

DRUGS (2)
  1. INTRON A [Suspect]
     Indication: RENAL CANCER METASTATIC
     Dosage: 3 X WEEK
  2. RESEARCH MEDICATION [Concomitant]

REACTIONS (7)
  - ANOREXIA [None]
  - ASTHENIA [None]
  - FALL [None]
  - FATIGUE [None]
  - NEOPLASM [None]
  - PAIN [None]
  - WEIGHT DECREASED [None]
